FAERS Safety Report 7170971-1 (Version None)
Quarter: 2010Q4

REPORT INFORMATION
  Report Type: 
  Country: None (occurrence: None)
  Receive Date: 20101217
  Receipt Date: 20101202
  Transmission Date: 20110411
  Serious: Yes (Hospitalization)
  Sender: FDA-Public Use
  Company Number: US-MERCK-1012USA00826

PATIENT
  Age: 64 Year
  Sex: Male

DRUGS (11)
  1. DECADRON [Suspect]
     Indication: OEDEMA
     Route: 048
     Dates: end: 20101105
  2. DECADRON [Suspect]
     Route: 048
     Dates: start: 20101115
  3. DECADRON [Suspect]
     Route: 048
     Dates: start: 20101106, end: 20101114
  4. CELEXA [Suspect]
     Indication: DEPRESSION
     Route: 048
     Dates: start: 20101107, end: 20101109
  5. METOPROLOL [Concomitant]
     Indication: HYPERTENSION
     Route: 048
     Dates: start: 20101107
  6. METOPROLOL [Concomitant]
     Route: 048
     Dates: start: 20101107
  7. METOPROLOL [Concomitant]
     Indication: SUPRAVENTRICULAR TACHYCARDIA
     Route: 048
     Dates: start: 20101107
  8. METOPROLOL [Concomitant]
     Route: 048
     Dates: start: 20101107
  9. LEVOTHYROXINE SODIUM [Concomitant]
     Indication: HYPOTHYROIDISM
     Route: 065
  10. OMEPRAZOLE [Concomitant]
     Indication: GASTROOESOPHAGEAL REFLUX DISEASE
     Route: 065
  11. XANAX [Concomitant]
     Indication: PANIC ATTACK
     Route: 048

REACTIONS (5)
  - AGITATION [None]
  - ASTHENIA [None]
  - MEDICATION ERROR [None]
  - SUICIDAL IDEATION [None]
  - TREMOR [None]
